FAERS Safety Report 9072783 (Version 1)
Quarter: 2013Q1

REPORT INFORMATION
  Report Type: Report from Study
  Country: US (occurrence: US)
  Receive Date: 20130129
  Receipt Date: 20130129
  Transmission Date: 20140127
  Serious: No
  Sender: FDA-Public Use
  Company Number: US-ABBOTT-12P-163-0938855-00

PATIENT
  Age: 61 Year
  Sex: Male

DRUGS (9)
  1. HUMIRA 40 MG/0.8 ML PEN [Suspect]
     Indication: CROHN^S DISEASE
     Route: 058
     Dates: start: 20120411
  2. CYMBALTA [Concomitant]
     Indication: BACK PAIN
     Dosage: 120MG DAILY
  3. KLONOPIN [Concomitant]
     Indication: PRODUCT USED FOR UNKNOWN INDICATION
  4. REMERON [Concomitant]
     Indication: INSOMNIA
     Dosage: 30MG DAILY
  5. IMURAN [Concomitant]
     Indication: CROHN^S DISEASE
     Dosage: 200MG DAILY
  6. LORTAB 10 [Concomitant]
     Indication: PAIN
     Dosage: EVERY 6 HOURS AS NEEDED
  7. HCTZ [Concomitant]
     Indication: BLOOD PRESSURE INCREASED
     Dosage: 12.5MG DAILY
  8. BABY ASPIRIN [Concomitant]
     Indication: PROPHYLAXIS
     Dosage: DAILY
  9. MULTIVITAMIN [Concomitant]
     Indication: PRODUCT USED FOR UNKNOWN INDICATION
     Dosage: DAILY

REACTIONS (1)
  - Injection site erythema [Recovering/Resolving]
